FAERS Safety Report 9789607 (Version 2)
Quarter: 2014Q1

REPORT INFORMATION
  Report Type: Spontaneous
  Country: US (occurrence: US)
  Receive Date: 20131231
  Receipt Date: 20140311
  Transmission Date: 20141002
  Serious: Yes (Other)
  Sender: FDA-Public Use
  Company Number: US-BRISTOL-MYERS SQUIBB COMPANY-19926898

PATIENT
  Age: 88 Year
  Sex: Male

DRUGS (12)
  1. ELIQUIS [Suspect]
     Indication: ATRIAL FIBRILLATION
     Route: 048
     Dates: start: 20131211, end: 20140115
  2. ELIQUIS [Suspect]
     Indication: CEREBROVASCULAR ACCIDENT
     Route: 048
     Dates: start: 20131211, end: 20140115
  3. ASPIRIN [Suspect]
  4. METROGEL [Concomitant]
  5. SYNTHROID [Concomitant]
  6. TOPROL [Concomitant]
  7. AMLODIPINE [Concomitant]
  8. DIGOXIN [Concomitant]
  9. TAMSULOSIN [Concomitant]
  10. KEPPRA [Concomitant]
  11. SERTRALINE [Concomitant]
  12. OMEPRAZOLE [Concomitant]

REACTIONS (2)
  - Corneal disorder [Unknown]
  - Tooth disorder [Unknown]
